FAERS Safety Report 17253358 (Version 1)
Quarter: 2020Q1

REPORT INFORMATION
  Report Type: Spontaneous
  Country: ES (occurrence: ES)
  Receive Date: 20200109
  Receipt Date: 20200109
  Transmission Date: 20200409
  Serious: Yes (Other)
  Sender: FDA-Public Use
  Company Number: NVSC2019ES028857

PATIENT

DRUGS (1)
  1. COSENTYX [Suspect]
     Active Substance: SECUKINUMAB
     Indication: AXIAL SPONDYLOARTHRITIS
     Dosage: 150 MG, UNKNOWN
     Route: 065
     Dates: start: 20190308, end: 201909

REACTIONS (6)
  - Abdominal pain [Recovered/Resolved]
  - Enteritis [Recovered/Resolved]
  - Weight decreased [Recovered/Resolved]
  - Inflammatory bowel disease [Recovered/Resolved]
  - Product use in unapproved indication [Unknown]
  - Diarrhoea [Recovered/Resolved]

NARRATIVE: CASE EVENT DATE: 20190730
